FAERS Safety Report 7076751-X (Version None)
Quarter: 2010Q4

REPORT INFORMATION
  Report Type: 
  Country: None (occurrence: None)
  Receive Date: 20101101
  Receipt Date: 20101019
  Transmission Date: 20110411
  Serious: Yes (Hospitalization, Other)
  Sender: FDA-Public Use
  Company Number: US-ELI_LILLY_AND_COMPANY-US201004002926

PATIENT
  Sex: Female

DRUGS (14)
  1. FORTEO [Suspect]
     Indication: OSTEOPOROSIS
     Dosage: 20 UG, DAILY (1/D)
     Dates: end: 20100306
  2. FORTEO [Suspect]
     Dosage: 20 UG, DAILY (1/D)
  3. CYMBALTA [Suspect]
     Indication: DEPRESSION
     Dosage: 60 MG, DAILY (1/D)
  4. NORVASC [Concomitant]
  5. VITAMIN TAB [Concomitant]
  6. NEURONTIN [Concomitant]
     Indication: BACK DISORDER
  7. PRILOSEC [Concomitant]
  8. CELEBREX [Concomitant]
  9. CLARITIN-D [Concomitant]
  10. TYLENOL (CAPLET) [Concomitant]
  11. VITAMIN D [Concomitant]
  12. VITAMIN B NOS [Concomitant]
  13. GABAPENTIN [Concomitant]
  14. NASONEX [Concomitant]

REACTIONS (4)
  - ASTHENIA [None]
  - CHOLECYSTITIS ACUTE [None]
  - CHOLELITHIASIS [None]
  - ESCHERICHIA INFECTION [None]
